FAERS Safety Report 21457682 (Version 1)
Quarter: 2022Q4

REPORT INFORMATION
  Report Type: Spontaneous
  Country: GR (occurrence: None)
  Receive Date: 20221014
  Receipt Date: 20221014
  Transmission Date: 20230113
  Serious: Yes (Other)
  Sender: FDA-Public Use
  Company Number: 2022A344123

PATIENT
  Age: 75 Year
  Sex: Female

DRUGS (19)
  1. FULVESTRANT [Suspect]
     Active Substance: FULVESTRANT
     Indication: Metastases to liver
     Dosage: UNK
     Route: 065
     Dates: start: 20220610
  2. FULVESTRANT [Suspect]
     Active Substance: FULVESTRANT
     Indication: Hormone receptor positive HER2 negative breast cancer
     Dosage: UNK
     Route: 065
     Dates: start: 20220610
  3. PALBOCICLIB [Suspect]
     Active Substance: PALBOCICLIB
     Indication: Hormone receptor positive HER2 negative breast cancer
     Dosage: UNK
     Route: 065
     Dates: start: 202003
  4. LETROZOLE [Suspect]
     Active Substance: LETROZOLE
     Indication: Hormone receptor positive HER2 negative breast cancer
     Dosage: UNK
     Route: 065
     Dates: start: 202003
  5. LETROZOLE [Suspect]
     Active Substance: LETROZOLE
     Indication: Metastases to liver
     Dosage: UNK
     Route: 065
     Dates: start: 202003
  6. DENOSUMAB [Suspect]
     Active Substance: DENOSUMAB
     Indication: Metastases to liver
     Dosage: UNK
     Route: 065
  7. DENOSUMAB [Suspect]
     Active Substance: DENOSUMAB
     Indication: Hormone receptor positive HER2 negative breast cancer
     Dosage: UNK
     Route: 065
  8. PIQRAY [Suspect]
     Active Substance: ALPELISIB
     Indication: Metastases to liver
     Dosage: UNK
     Route: 065
  9. PIQRAY [Suspect]
     Active Substance: ALPELISIB
     Indication: Hormone receptor positive HER2 negative breast cancer
     Dosage: UNK
     Route: 065
  10. PIQRAY [Suspect]
     Active Substance: ALPELISIB
     Indication: Metastases to liver
     Route: 065
  11. PIQRAY [Suspect]
     Active Substance: ALPELISIB
     Indication: Hormone receptor positive HER2 negative breast cancer
     Route: 065
  12. PIQRAY [Suspect]
     Active Substance: ALPELISIB
     Indication: Metastases to liver
     Route: 065
  13. PIQRAY [Suspect]
     Active Substance: ALPELISIB
     Indication: Hormone receptor positive HER2 negative breast cancer
     Route: 065
  14. PIQRAY [Suspect]
     Active Substance: ALPELISIB
     Indication: Metastases to liver
     Dosage: 150 MG, BID, 300 MG DAILY
     Route: 065
     Dates: start: 20220701
  15. PIQRAY [Suspect]
     Active Substance: ALPELISIB
     Indication: Hormone receptor positive HER2 negative breast cancer
     Dosage: 150 MG, BID, 300 MG DAILY
     Route: 065
     Dates: start: 20220701
  16. VITAMIN D3 [Concomitant]
     Active Substance: CHOLECALCIFEROL
     Indication: Product used for unknown indication
     Dosage: UNK
     Route: 065
  17. CALCIUM [Concomitant]
     Active Substance: CALCIUM
     Indication: Product used for unknown indication
     Dosage: UNK
     Route: 065
  18. ATORVASTATIN [Concomitant]
     Active Substance: ATORVASTATIN
     Indication: Dyslipidaemia
     Dosage: UNK
     Route: 065
  19. MOXONIDINE [Concomitant]
     Active Substance: MOXONIDINE
     Indication: Hypertension
     Dosage: UNK
     Route: 065

REACTIONS (3)
  - Metastases to liver [Unknown]
  - Blood glucose increased [Recovering/Resolving]
  - Diarrhoea [Recovering/Resolving]

NARRATIVE: CASE EVENT DATE: 20220501
